FAERS Safety Report 4650334-0 (Version None)
Quarter: 2005Q2

REPORT INFORMATION
  Report Type: 
  Country: None (occurrence: None)
  Receive Date: 20050428
  Receipt Date: 20050421
  Transmission Date: 20051028
  Serious: Yes (Other)
  Sender: FDA-Public Use
  Company Number: 2005061531

PATIENT
  Age: 59 Year
  Sex: Male
  Weight: 117.9352 kg

DRUGS (4)
  1. LIPITOR [Suspect]
     Indication: BLOOD CHOLESTEROL INCREASED
     Dosage: 20 MG (20 MG, 1IN 1 D), ORAL
     Route: 048
     Dates: end: 20050401
  2. EZETIMIBE (EZETIMIBE) [Suspect]
     Indication: BLOOD CHOLESTEROL INCREASED
     Dosage: 10 MG (10 MG, 1 IN 1 D), ORAL
     Route: 048
     Dates: start: 20050101
  3. ASCORBIC ACID [Concomitant]
  4. MULTIPLE VITAMINS (ASCORIBC ACID, ERGOCALCIFEROL, FOLIC ACID, RETINOL, [Concomitant]

REACTIONS (10)
  - ARTHRALGIA [None]
  - BLOOD CHOLESTEROL INCREASED [None]
  - DIFFICULTY IN WALKING [None]
  - DRUG INEFFECTIVE [None]
  - GAIT DISTURBANCE [None]
  - HIP ARTHROPLASTY [None]
  - MUSCLE SPASMS [None]
  - MYALGIA [None]
  - NUCLEAR MAGNETIC RESONANCE IMAGING ABNORMAL [None]
  - PAIN IN EXTREMITY [None]
